FAERS Safety Report 15288913 (Version 1)
Quarter: 2018Q3

REPORT INFORMATION
  Report Type: Spontaneous
  Country: US (occurrence: US)
  Receive Date: 20180803
  Receipt Date: 20180803
  Transmission Date: 20181010
  Serious: Yes (Hospitalization)
  Sender: FDA-Public Use
  Company Number: None

PATIENT
  Age: 64 Year
  Sex: Female

DRUGS (9)
  1. NEURONTIN 800MG [Concomitant]
  2. PREDNISONE 20MG [Concomitant]
     Active Substance: PREDNISONE
  3. HYDROCODONE/APAP 5/325 [Concomitant]
     Active Substance: ACETAMINOPHEN\HYDROCODONE
  4. QUETIAPINE ER 50MG [Concomitant]
  5. XELJANZ XR [Suspect]
     Active Substance: TOFACITINIB CITRATE
     Indication: RHEUMATOID ARTHRITIS
     Route: 048
     Dates: start: 20170216
  6. BUSPIRONE 5MG [Concomitant]
  7. METHOCARBAMOL 500MG [Concomitant]
  8. OTEZLA [Concomitant]
     Active Substance: APREMILAST
  9. ESCITALOPRAM [Concomitant]
     Active Substance: ESCITALOPRAM OXALATE

REACTIONS (1)
  - Localised infection [None]

NARRATIVE: CASE EVENT DATE: 20180724
